FAERS Safety Report 13617983 (Version 2)
Quarter: 2017Q3

REPORT INFORMATION
  Report Type: Spontaneous
  Country: FR (occurrence: FR)
  Receive Date: 20170606
  Receipt Date: 20170718
  Transmission Date: 20171127
  Serious: Yes (Hospitalization, Other)
  Sender: FDA-Public Use
  Company Number: FR-TEVA-772804ROM

PATIENT
  Age: 63 Year
  Sex: Female
  Weight: 54 kg

DRUGS (17)
  1. VELBE 10 MG [Suspect]
     Active Substance: VINBLASTINE SULFATE
     Indication: HODGKIN^S DISEASE
     Route: 042
     Dates: start: 20160922, end: 20161006
  2. DACARBAZINE MEDAC 500 MG [Suspect]
     Active Substance: DACARBAZINE
     Indication: HODGKIN^S DISEASE
     Route: 042
     Dates: start: 20160922, end: 20161006
  3. EMEND [Interacting]
     Active Substance: APREPITANT
     Indication: PROPHYLAXIS OF NAUSEA AND VOMITING
     Route: 048
  4. PREVISCAN 20 [Concomitant]
     Indication: ATRIAL FIBRILLATION
     Route: 048
  5. DOXORUBICINE TEVA 50 MG/25 ML [Suspect]
     Active Substance: DOXORUBICIN
     Indication: HODGKIN^S DISEASE
     Route: 042
     Dates: start: 20160922, end: 20161006
  6. LASILIX 40 MG [Suspect]
     Active Substance: FUROSEMIDE
     Indication: HYPERTENSION
     Dosage: 40 MILLIGRAM DAILY;
     Route: 048
  7. ALDACTONE 50 MG [Concomitant]
     Indication: HYPERTENSION
     Dosage: 50 MILLIGRAM DAILY;
     Route: 048
  8. DIGOXINE NATIVELLE 0.25 MG [Concomitant]
     Active Substance: DIGOXIN
     Indication: ATRIAL FIBRILLATION
     Dosage: .25 MILLIGRAM DAILY;
     Route: 048
  9. HYDROCORTISONE UPJOHN [Concomitant]
     Active Substance: HYDROCORTISONE
     Indication: PROPHYLAXIS OF NAUSEA AND VOMITING
     Dosage: 100 MILLIGRAM DAILY; EXACT FORM: INJECTABLE PREPARATION
     Route: 042
  10. COZAAR [Concomitant]
     Active Substance: LOSARTAN POTASSIUM
     Indication: HYPERTENSION
     Dosage: 25 MILLIGRAM DAILY;
     Route: 048
  11. BACTRIM [Concomitant]
     Active Substance: SULFAMETHOXAZOLE\TRIMETHOPRIM
     Indication: OPPORTUNISTIC INFECTION PROPHYLAXIS
     Route: 048
  12. POLARAMINE [Concomitant]
     Active Substance: DEXCHLORPHENIRAMINE MALEATE
     Dosage: 5 MILLIGRAM DAILY;
     Route: 040
  13. ZELITREX 500 MG [Concomitant]
     Active Substance: VALACYCLOVIR HYDROCHLORIDE
     Indication: OPPORTUNISTIC INFECTION PROPHYLAXIS
     Dosage: 500 MILLIGRAM DAILY;
     Route: 048
  14. PARACETAMOL B BRAUN 10 MG/ML [Concomitant]
     Indication: PAIN
     Dosage: 1000 MILLIGRAM DAILY;
     Route: 042
  15. PANTOPRAZOLE ARROW 20 MG [Concomitant]
     Active Substance: PANTOPRAZOLE SODIUM
     Dosage: EXACT FORM: ENTERIC COATED TABLET
     Route: 048
  16. BLEOMYCINE BELLON 15 MG [Suspect]
     Active Substance: BLEOMYCIN SULFATE
     Indication: HODGKIN^S DISEASE
     Route: 042
     Dates: start: 20160922, end: 20161006
  17. CARVEDILOL. [Concomitant]
     Active Substance: CARVEDILOL
     Indication: HYPERTENSION
     Dosage: 6.25 MILLIGRAM DAILY;
     Route: 048

REACTIONS (4)
  - Glossitis [Recovered/Resolved]
  - Gastrointestinal motility disorder [Recovered/Resolved]
  - Febrile neutropenia [Recovered/Resolved]
  - Bone marrow failure [Recovered/Resolved]

NARRATIVE: CASE EVENT DATE: 20161007
